FAERS Safety Report 9516441 (Version 1)
Quarter: 2013Q3

REPORT INFORMATION
  Report Type: Spontaneous
  Country: FR (occurrence: FR)
  Receive Date: 20130911
  Receipt Date: 20130911
  Transmission Date: 20140515
  Serious: Yes (Death, Hospitalization)
  Sender: FDA-Public Use
  Company Number: FR-PFIZER INC-2013256565

PATIENT
  Age: 72 Year
  Sex: Male

DRUGS (19)
  1. TYGACIL [Suspect]
     Indication: ENTEROBACTER SEPSIS
     Dosage: 100 MG, 1X/DAY
     Route: 042
     Dates: start: 20101231, end: 20110127
  2. TYGACIL [Suspect]
     Indication: ENTEROCOCCAL INFECTION
  3. NEORAL [Concomitant]
  4. CELLCEPT [Concomitant]
  5. CORTANCYL [Concomitant]
  6. INSULATARD [Concomitant]
  7. NOVORAPID [Concomitant]
  8. XATRAL LP [Concomitant]
  9. AMLOR [Concomitant]
  10. ADANCOR [Concomitant]
  11. EUPRESSYL [Concomitant]
  12. LASILIX [Concomitant]
  13. KARDEGIC [Concomitant]
  14. ELISOR [Concomitant]
  15. INEXIUM [Concomitant]
  16. LEXOMIL [Concomitant]
  17. PARACETAMOL [Concomitant]
  18. TIENAM [Concomitant]
     Indication: ENTEROBACTER SEPSIS
  19. VFEND [Concomitant]

REACTIONS (1)
  - Hepatitis cholestatic [Fatal]
